FAERS Safety Report 11696125 (Version 3)
Quarter: 2017Q3

REPORT INFORMATION
  Report Type: Spontaneous
  Country: US (occurrence: US)
  Receive Date: 20151104
  Receipt Date: 20170720
  Transmission Date: 20171127
  Serious: Yes (Hospitalization, Other)
  Sender: FDA-Public Use
  Company Number: US-JNJFOC-20151100053

PATIENT
  Age: 50 Year
  Sex: Female

DRUGS (3)
  1. METFORMIN [Concomitant]
     Active Substance: METFORMIN HYDROCHLORIDE
     Indication: DIABETES MELLITUS
     Route: 065
     Dates: start: 1997
  2. INVOKANA [Suspect]
     Active Substance: CANAGLIFLOZIN
     Indication: DIABETES MELLITUS
     Route: 048
     Dates: start: 20131020, end: 201510
  3. VENLAFAXINE [Concomitant]
     Active Substance: VENLAFAXINE HYDROCHLORIDE
     Indication: ANTIDEPRESSANT THERAPY
     Route: 065
     Dates: start: 2011

REACTIONS (4)
  - Urinary tract infection [Unknown]
  - Renal injury [Unknown]
  - Acute myocardial infarction [Recovering/Resolving]
  - Diabetic ketoacidosis [Unknown]

NARRATIVE: CASE EVENT DATE: 20140217
